FAERS Safety Report 4990044-3 (Version None)
Quarter: 2006Q2

REPORT INFORMATION
  Report Type: 
  Country: None (occurrence: None)
  Receive Date: 20060503
  Receipt Date: 20060314
  Transmission Date: 20061013
  Serious: Yes (Life-Threatening, Hospitalization)
  Sender: FDA-Public Use
  Company Number: US-AMGEN-US172394

PATIENT
  Sex: Female

DRUGS (2)
  1. ENBREL [Suspect]
     Indication: RHEUMATOID ARTHRITIS
     Route: 058
     Dates: start: 20030401, end: 20051101
  2. PREDNISONE TAB [Concomitant]
     Route: 048

REACTIONS (3)
  - IMMUNOSUPPRESSION [None]
  - PNEUMONIA ASPIRATION [None]
  - PNEUMONITIS CHEMICAL [None]
